FAERS Safety Report 6482340-8 (Version None)
Quarter: 2009Q4

REPORT INFORMATION
  Report Type: 
  Country: None (occurrence: None)
  Receive Date: 20091208
  Receipt Date: 20090410
  Transmission Date: 20100525
  Serious: No
  Sender: FDA-Public Use
  Company Number: US-AMGEN-TCS342487

PATIENT
  Sex: Female

DRUGS (1)
  1. ENBREL [Suspect]
     Indication: PSORIATIC ARTHROPATHY
     Route: 058
     Dates: start: 20090408

REACTIONS (7)
  - COUGH [None]
  - EYE SWELLING [None]
  - EYELID MARGIN CRUSTING [None]
  - NAUSEA [None]
  - PYREXIA [None]
  - RESPIRATORY TRACT CONGESTION [None]
  - VOMITING [None]
